FAERS Safety Report 19561776 (Version 2)
Quarter: 2021Q3

REPORT INFORMATION
  Report Type: Report from Study
  Country: US (occurrence: US)
  Receive Date: 20210714
  Receipt Date: 20210730
  Transmission Date: 20211014
  Serious: Yes (Hospitalization)
  Sender: FDA-Public Use
  Company Number: US-ABBVIE-21K-163-3985995-00

PATIENT
  Age: 68 Year
  Sex: Female
  Weight: 49.03 kg

DRUGS (2)
  1. METHOTREXATE. [Concomitant]
     Active Substance: METHOTREXATE
     Indication: RHEUMATOID ARTHRITIS
  2. HUMIRA [Suspect]
     Active Substance: ADALIMUMAB
     Indication: RHEUMATOID ARTHRITIS
     Route: 058
     Dates: start: 2005

REACTIONS (11)
  - Finger deformity [Not Recovered/Not Resolved]
  - Pain in extremity [Not Recovered/Not Resolved]
  - Peripheral swelling [Not Recovered/Not Resolved]
  - Foot deformity [Not Recovered/Not Resolved]
  - Fatigue [Not Recovered/Not Resolved]
  - Feeling hot [Not Recovered/Not Resolved]
  - Injection site inflammation [Unknown]
  - Exostosis [Not Recovered/Not Resolved]
  - Elbow deformity [Not Recovered/Not Resolved]
  - Rheumatoid arthritis [Unknown]
  - Device issue [Unknown]

NARRATIVE: CASE EVENT DATE: 2005
